FAERS Safety Report 11193210 (Version 1)
Quarter: 2015Q2

REPORT INFORMATION
  Report Type: Spontaneous
  Country: US (occurrence: US)
  Receive Date: 20150616
  Receipt Date: 20150616
  Transmission Date: 20150821
  Serious: No
  Sender: FDA-Public Use
  Company Number: US-TAKEDA-2014MPI002387

PATIENT
  Weight: 79.55 kg

DRUGS (1)
  1. VELCADE [Suspect]
     Active Substance: BORTEZOMIB
     Indication: PLASMA CELL MYELOMA
     Dosage: 2.85 MG, UNK
     Route: 042
     Dates: start: 201405, end: 20140819

REACTIONS (1)
  - Deafness [Not Recovered/Not Resolved]
